FAERS Safety Report 5362602-8 (Version None)
Quarter: 2007Q2

REPORT INFORMATION
  Report Type: 
  Country: None (occurrence: None)
  Receive Date: 20070619
  Receipt Date: 20070608
  Transmission Date: 20071010
  Serious: Yes (Other)
  Sender: FDA-Public Use
  Company Number: BR-PFIZER INC-2007048921

PATIENT
  Sex: Male

DRUGS (2)
  1. DETRUSITOL LA [Suspect]
     Indication: HYPERTONIC BLADDER
     Route: 048
  2. DORZOLAMIDE [Concomitant]

REACTIONS (1)
  - VOMITING [None]
